FAERS Safety Report 13820410 (Version 1)
Quarter: 2017Q3

REPORT INFORMATION
  Report Type: Spontaneous
  Country: US (occurrence: US)
  Receive Date: 20170801
  Receipt Date: 20170801
  Transmission Date: 20171127
  Serious: Yes (Hospitalization, Other)
  Sender: FDA-Public Use
  Company Number: US-APOTEX-2017AP016062

PATIENT
  Age: 53 Year
  Sex: Male

DRUGS (1)
  1. AMLODIPINE BESYLATE. [Suspect]
     Active Substance: AMLODIPINE BESYLATE
     Indication: PRODUCT USED FOR UNKNOWN INDICATION
     Dosage: 80 DF, SINGLE
     Route: 048

REACTIONS (6)
  - Suicide attempt [Unknown]
  - Hypotension [Unknown]
  - Pulseless electrical activity [Unknown]
  - Overdose [Unknown]
  - Brain injury [Unknown]
  - Cardiac arrest [Unknown]
